FAERS Safety Report 9155150 (Version 1)
Quarter: 2013Q1

REPORT INFORMATION
  Report Type: Spontaneous
  Country: AR (occurrence: AR)
  Receive Date: 20130311
  Receipt Date: 20130311
  Transmission Date: 20140127
  Serious: Yes (Other)
  Sender: FDA-Public Use
  Company Number: AR-PFIZER INC-2013078882

PATIENT
  Age: 50 Year
  Sex: Female

DRUGS (1)
  1. RAPAMUNE [Suspect]
     Indication: RENAL TRANSPLANT
     Dosage: 2 MG, 1X/DAY
     Dates: start: 2003

REACTIONS (2)
  - Ovarian cancer [Recovered/Resolved]
  - Colon cancer [Recovered/Resolved]
